FAERS Safety Report 6637968-9 (Version None)
Quarter: 2010Q1

REPORT INFORMATION
  Report Type: 
  Country: None (occurrence: None)
  Receive Date: 20100317
  Receipt Date: 20100312
  Transmission Date: 20100710
  Serious: Yes (Death, Life-Threatening)
  Sender: FDA-Public Use
  Company Number: CN-SANOFI-AVENTIS-2010SA011105

PATIENT
  Age: 65 Year
  Sex: Male
  Weight: 56 kg

DRUGS (24)
  1. ENOXAPARIN SODIUM [Suspect]
     Route: 058
     Dates: start: 20100224, end: 20100224
  2. CEFAZOLIN [Concomitant]
     Route: 065
     Dates: start: 20100224, end: 20100224
  3. OMEPRAZOLE SODIUM [Concomitant]
     Route: 065
     Dates: start: 20100224, end: 20100225
  4. BROMHEXINE HYDROCHLORIDE [Concomitant]
     Route: 065
     Dates: start: 20100224, end: 20100225
  5. CHYMOTRYPSIN [Concomitant]
     Route: 065
     Dates: start: 20100224, end: 20100224
  6. MANNITOL [Concomitant]
     Route: 065
     Dates: start: 20100225, end: 20100225
  7. MOXIFLOXACIN [Concomitant]
     Route: 065
     Dates: start: 20100225, end: 20100225
  8. DEXAMETHASONE [Concomitant]
     Route: 065
     Dates: start: 20100224, end: 20100224
  9. INSULIN [Concomitant]
     Route: 065
     Dates: start: 20100225, end: 20100225
  10. GENTAMICIN [Concomitant]
     Route: 065
     Dates: start: 20100224, end: 20100224
  11. PHENOBARBITAL [Concomitant]
     Route: 065
     Dates: start: 20100224, end: 20100224
  12. ATROPINE SULFATE [Concomitant]
     Route: 065
     Dates: start: 20100224, end: 20100224
  13. FLUOROURACIL [Concomitant]
     Route: 065
     Dates: start: 20100224, end: 20100224
  14. MORPHINE HYDROCHLORIDE [Concomitant]
     Route: 065
     Dates: start: 20100224, end: 20100224
  15. PROMETHAZINE [Concomitant]
     Route: 065
     Dates: start: 20100224, end: 20100224
  16. VITAMIN K1 [Concomitant]
     Route: 065
     Dates: start: 20100224, end: 20100225
  17. TRANEXAMIC ACID [Concomitant]
     Route: 065
     Dates: start: 20100224, end: 20100224
  18. SODIUM BICARBONATE [Concomitant]
     Route: 065
     Dates: start: 20100224, end: 20100225
  19. DIAZEPAM [Concomitant]
     Route: 065
     Dates: start: 20100224, end: 20100224
  20. FUROSEMIDE [Concomitant]
     Route: 065
     Dates: start: 20100225, end: 20100225
  21. INSULIN ISOPHANE, HUMAN BIOSYNTHETIC [Concomitant]
     Route: 065
     Dates: start: 20100225, end: 20100225
  22. TORASEMIDE [Concomitant]
     Route: 065
     Dates: start: 20100225, end: 20100225
  23. DOPAMINE HYDROCHLORIDE [Concomitant]
     Route: 065
     Dates: start: 20100225, end: 20100225
  24. HEMOCOAGULASE [Concomitant]
     Route: 065
     Dates: start: 20100225, end: 20100225

REACTIONS (8)
  - BLOOD PRESSURE FLUCTUATION [None]
  - CIRCULATORY COLLAPSE [None]
  - COMA [None]
  - HAEMOGLOBIN DECREASED [None]
  - HEART RATE ABNORMAL [None]
  - MULTI-ORGAN FAILURE [None]
  - POST PROCEDURAL HAEMORRHAGE [None]
  - RESPIRATORY FAILURE [None]
